FAERS Safety Report 24242244 (Version 1)
Quarter: 2024Q3

REPORT INFORMATION
  Report Type: Spontaneous
  Country: EG (occurrence: EG)
  Receive Date: 20240823
  Receipt Date: 20240823
  Transmission Date: 20241016
  Serious: Yes (Disabling)
  Sender: ROCHE
  Company Number: EG-ROCHE-10000062008

PATIENT
  Age: 42 Year
  Sex: Female
  Weight: 80 kg

DRUGS (3)
  1. PHESGO [Suspect]
     Active Substance: HYALURONIDASE-ZZXF\PERTUZUMAB\TRASTUZUMAB
     Indication: Breast cancer
     Dosage: 600/600
     Route: 058
     Dates: start: 20240313
  2. DOCETAXEL [Concomitant]
     Active Substance: DOCETAXEL\DOCETAXEL ANHYDROUS
     Route: 042
     Dates: start: 20240313
  3. CARBOPLATIN [Concomitant]
     Active Substance: CARBOPLATIN
     Route: 050
     Dates: start: 20240313

REACTIONS (3)
  - Pain in extremity [Not Recovered/Not Resolved]
  - Neuropathy peripheral [Not Recovered/Not Resolved]
  - Gait disturbance [Not Recovered/Not Resolved]
